FAERS Safety Report 16803267 (Version 2)
Quarter: 2019Q3

REPORT INFORMATION
  Report Type: Not Available
  Country: US (occurrence: US)
  Receive Date: 20190913
  Receipt Date: 20190930
  Transmission Date: 20191005
  Serious: No
  Sender: FDA-Public Use
  Company Number: US-NEUROCRINE BIOSCIENCES INC.-2019NBI02561

PATIENT
  Sex: Female

DRUGS (9)
  1. REXULTI [Concomitant]
     Active Substance: BREXPIPRAZOLE
  2. REMERON [Concomitant]
     Active Substance: MIRTAZAPINE
  3. VYVANSE [Suspect]
     Active Substance: LISDEXAMFETAMINE DIMESYLATE
     Indication: PRODUCT USED FOR UNKNOWN INDICATION
     Dosage: RANGING FROM 10 MG TO 30 MG
  4. ABILIFY [Concomitant]
     Active Substance: ARIPIPRAZOLE
     Dosage: RANGING BETWEEN 2MG AND 7MG
  5. JARDIANCE [Concomitant]
     Active Substance: EMPAGLIFLOZIN
  6. XANAX [Concomitant]
     Active Substance: ALPRAZOLAM
  7. INGREZZA [Suspect]
     Active Substance: VALBENAZINE
     Indication: TARDIVE DYSKINESIA
     Route: 048
     Dates: start: 20171220
  8. BELSOMRA [Concomitant]
     Active Substance: SUVOREXANT
  9. BENZTROPINE. [Concomitant]
     Active Substance: BENZTROPINE

REACTIONS (3)
  - Fatigue [Unknown]
  - Dysarthria [Recovered/Resolved]
  - Speech disorder [Recovered/Resolved]
